FAERS Safety Report 10035853 (Version 1)
Quarter: 2014Q1

REPORT INFORMATION
  Report Type: Spontaneous
  Country: US (occurrence: None)
  Receive Date: 20140306
  Receipt Date: 20140306
  Transmission Date: 20141002
  Serious: Yes (Other)
  Sender: FDA-Public Use
  Company Number: 163-21880-13062401

PATIENT
  Age: 51 Year
  Sex: Female
  Weight: 56.7 kg

DRUGS (10)
  1. REVLIMID (LENALIDOMIDE) (CAPSULES) [Suspect]
     Indication: PLASMA CELL MYELOMA
     Dosage: 5 MG, 21 IN 21 D, PO
     Route: 048
     Dates: start: 201304
  2. RENEGEL (SEVELAMER HYDROCHLORIDE) [Concomitant]
  3. RENVELA (SEVELAMER CARBONATE) [Concomitant]
  4. DEXAMETHASONE [Concomitant]
  5. NEUPOGEN (FILGRASTIM) [Concomitant]
  6. ACYCLOVIR (ACICLOVIR) (ACICLOVIR) [Concomitant]
  7. LISINOPRIL [Concomitant]
  8. PACERONE (AMIODARONE HYDROCHLORIDE) [Concomitant]
  9. METOPROLOL [Concomitant]
  10. ASPIRIN (ACETYLSALICYLIC ACID) [Concomitant]

REACTIONS (2)
  - White blood cell count decreased [None]
  - Platelet count decreased [None]
